FAERS Safety Report 17465158 (Version 3)
Quarter: 2020Q2

REPORT INFORMATION
  Report Type: Report from Study
  Country: None (occurrence: US)
  Receive Date: 20200227
  Receipt Date: 20200518
  Transmission Date: 20200713
  Serious: Yes (Other)
  Sender: FDA-Public Use
  Company Number: US-ABBVIE-20K-163-3284546-00

PATIENT
  Age: 52 Year
  Sex: Female
  Weight: 105.33 kg

DRUGS (1)
  1. HUMIRA [Suspect]
     Active Substance: ADALIMUMAB
     Indication: HIDRADENITIS
     Dosage: CITRATE FREE
     Route: 058

REACTIONS (12)
  - Weight decreased [Unknown]
  - Hypersensitivity [Unknown]
  - Discharge [Unknown]
  - Hidradenitis [Recovering/Resolving]
  - Therapeutic product effect delayed [Recovering/Resolving]
  - White blood cell disorder [Unknown]
  - Stress [Recovering/Resolving]
  - Glucose tolerance impaired [Unknown]
  - Pain [Unknown]
  - Nerve injury [Recovering/Resolving]
  - Drug ineffective [Unknown]
  - Depression [Recovering/Resolving]

NARRATIVE: CASE EVENT DATE: 202002
